FAERS Safety Report 9223625 (Version 1)
Quarter: 2013Q2

REPORT INFORMATION
  Report Type: Spontaneous
  Country: JP (occurrence: JP)
  Receive Date: 20130410
  Receipt Date: 20130410
  Transmission Date: 20140414
  Serious: Yes (Other)
  Sender: FDA-Public Use
  Company Number: JP-GLAXOSMITHKLINE-B0881201A

PATIENT
  Age: 13 Year
  Sex: Male

DRUGS (1)
  1. SERETIDE (50MCG/500MCG) [Suspect]
     Indication: ASTHMA
     Dosage: 500MCG TWICE PER DAY
     Route: 055

REACTIONS (2)
  - Ear haemorrhage [Recovered/Resolved]
  - Ear pain [Recovered/Resolved]
